FAERS Safety Report 25548030 (Version 1)
Quarter: 2025Q3

REPORT INFORMATION
  Report Type: Spontaneous
  Country: US (occurrence: US)
  Receive Date: 20250714
  Receipt Date: 20250714
  Transmission Date: 20251021
  Serious: No
  Sender: ALEXION PHARMACEUTICALS
  Company Number: US-AstraZeneca-CH-00906332A

PATIENT

DRUGS (7)
  1. TEZSPIRE [Suspect]
     Active Substance: TEZEPELUMAB-EKKO
     Route: 065
  2. TEZSPIRE [Suspect]
     Active Substance: TEZEPELUMAB-EKKO
  3. FASENRA [Suspect]
     Active Substance: BENRALIZUMAB
     Route: 065
  4. CLARITIN [Concomitant]
     Active Substance: LORATADINE
     Route: 065
  5. BENADRYL [Concomitant]
     Active Substance: DIPHENHYDRAMINE HYDROCHLORIDE
     Route: 065
  6. EPINEPHRINE [Concomitant]
     Active Substance: EPINEPHRINE
     Route: 065
  7. PEPCID [Concomitant]
     Active Substance: FAMOTIDINE
     Route: 065

REACTIONS (11)
  - Pruritus [Unknown]
  - Swelling [Unknown]
  - Pain [Unknown]
  - Back pain [Unknown]
  - Urticaria [Unknown]
  - Throat irritation [Unknown]
  - Pharyngeal swelling [Unknown]
  - Fatigue [Unknown]
  - Seasonal allergy [Unknown]
  - Pain in extremity [Unknown]
  - Dizziness [Unknown]
